FAERS Safety Report 7545415-8 (Version None)
Quarter: 2011Q2

REPORT INFORMATION
  Report Type: 
  Country: None (occurrence: None)
  Receive Date: 20110613
  Receipt Date: 20110613
  Transmission Date: 20111010
  Serious: Yes (Hospitalization)
  Sender: FDA-Public Use
  Company Number: None

PATIENT
  Sex: Female
  Weight: 102.2 kg

DRUGS (6)
  1. DOXORUBICIN HYDROCHLORIDE [Suspect]
     Dosage: 96 MG
  2. PREDNISONE [Suspect]
     Dosage: 1200 MG
  3. CYCLOPHOSPHAMIDE [Suspect]
     Dosage: 1800 MG
  4. VINCRISTINE SULFATE [Suspect]
     Dosage: 3.2 MG
  5. ETOPOSIDE [Suspect]
     Dosage: 480 MG
  6. RITUXIMAB (MOAB C2B8 ANTI CD20, CHIMERIC) [Suspect]
     Dosage: 375 MG

REACTIONS (2)
  - BODY TEMPERATURE INCREASED [None]
  - TACHYCARDIA [None]
